FAERS Safety Report 5126038-7 (Version None)
Quarter: 2006Q4

REPORT INFORMATION
  Report Type: 
  Country: None (occurrence: None)
  Receive Date: 20061012
  Receipt Date: 20061003
  Transmission Date: 20070319
  Serious: Yes (Congenital Anomaly)
  Sender: FDA-Public Use
  Company Number: SE-ABBOTT-06P-150-0345769-00

PATIENT
  Age: 5 Year
  Sex: Female

DRUGS (1)
  1. ERGENYL [Suspect]
     Indication: DRUG EXPOSURE DURING PREGNANCY
     Route: 065

REACTIONS (4)
  - AUTISM SPECTRUM DISORDER [None]
  - COMMUNICATION DISORDER [None]
  - DEVELOPMENTAL DELAY [None]
  - SPEECH DISORDER [None]
